FAERS Safety Report 14339726 (Version 3)
Quarter: 2018Q2

REPORT INFORMATION
  Report Type: Spontaneous
  Country: US (occurrence: US)
  Receive Date: 20171230
  Receipt Date: 20180511
  Transmission Date: 20180711
  Serious: Yes (Life-Threatening, Hospitalization)
  Sender: FDA-Public Use
  Company Number: PHEH2017US041944

PATIENT
  Sex: Female

DRUGS (2)
  1. RECLAST [Suspect]
     Active Substance: ZOLEDRONIC ACID
     Indication: PRODUCT USED FOR UNKNOWN INDICATION
     Dosage: UNK
     Route: 065
     Dates: start: 20170810
  2. NORCO [Concomitant]
     Active Substance: ACETAMINOPHEN\HYDROCODONE BITARTRATE
     Indication: PRODUCT USED FOR UNKNOWN INDICATION
     Dosage: 7.5 UNK
     Route: 065

REACTIONS (15)
  - Burning sensation [Unknown]
  - Feeling abnormal [Unknown]
  - Weight increased [Unknown]
  - Hypokinesia [Unknown]
  - Influenza like illness [Unknown]
  - Pruritus [Unknown]
  - Myalgia [Unknown]
  - Hypertension [Unknown]
  - Pyrexia [Unknown]
  - Malaise [Unknown]
  - Bone pain [Unknown]
  - Chills [Unknown]
  - Pain [Unknown]
  - Peripheral swelling [Unknown]
  - Abdominal distension [Unknown]
